FAERS Safety Report 6100237-X (Version None)
Quarter: 2009Q1

REPORT INFORMATION
  Report Type: 
  Country: None (occurrence: None)
  Receive Date: 20090303
  Receipt Date: 20090219
  Transmission Date: 20090719
  Serious: Yes (Other)
  Sender: FDA-Public Use
  Company Number: GB-JNJFOC-20081206456

PATIENT
  Sex: Male

DRUGS (2)
  1. DAKTARIN [Suspect]
     Route: 061
  2. DAKTARIN [Suspect]
     Indication: INFECTION
     Route: 061

REACTIONS (2)
  - DRUG INEFFECTIVE [None]
  - SKIN INJURY [None]
